FAERS Safety Report 24555880 (Version 1)
Quarter: 2024Q4

REPORT INFORMATION
  Report Type: Spontaneous
  Country: US (occurrence: US)
  Receive Date: 20241028
  Receipt Date: 20241028
  Transmission Date: 20250115
  Serious: Yes (Hospitalization, Other)
  Sender: PFIZER
  Company Number: US-PFIZER INC-PV202400138655

PATIENT
  Age: 89 Year
  Sex: Female

DRUGS (1)
  1. RIFABUTIN [Suspect]
     Active Substance: RIFABUTIN
     Dosage: UNK

REACTIONS (6)
  - Drug intolerance [Unknown]
  - Pulmonary cavitation [Unknown]
  - Bronchiectasis [Unknown]
  - Mycobacterium test positive [Unknown]
  - Pulmonary mass [Unknown]
  - Condition aggravated [Unknown]
